FAERS Safety Report 4703092-5 (Version None)
Quarter: 2005Q2

REPORT INFORMATION
  Report Type: 
  Country: None (occurrence: None)
  Receive Date: 20050628
  Receipt Date: 20050628
  Transmission Date: 20051028
  Serious: Yes (Other)
  Sender: FDA-Public Use
  Company Number: None

PATIENT
  Age: 9 Year
  Sex: Female
  Weight: 44.9061 kg

DRUGS (2)
  1. CITALOPAM (GENERIC CELEXA) [Suspect]
     Indication: ANXIETY
     Dosage: 20 MG Q DAY
     Dates: start: 20030210
  2. CITALOPAM (GENERIC CELEXA) [Suspect]
     Indication: DEPRESSION
     Dosage: 20 MG Q DAY
     Dates: start: 20030210

REACTIONS (1)
  - SLEEP TERROR [None]
